FAERS Safety Report 7342497-3 (Version None)
Quarter: 2011Q1

REPORT INFORMATION
  Report Type: 
  Country: None (occurrence: None)
  Receive Date: 20110310
  Receipt Date: 20110303
  Transmission Date: 20110831
  Serious: Yes (Other)
  Sender: FDA-Public Use
  Company Number: US-PFIZER INC-2011047848

PATIENT

DRUGS (2)
  1. INSULIN [Concomitant]
  2. LYRICA [Suspect]

REACTIONS (1)
  - HYPOGLYCAEMIA [None]
